FAERS Safety Report 18277240 (Version 1)
Quarter: 2020Q3

REPORT INFORMATION
  Report Type: Spontaneous
  Country: US (occurrence: US)
  Receive Date: 20200917
  Receipt Date: 20200917
  Transmission Date: 20201103
  Serious: Yes (Other)
  Sender: FDA-Public Use
  Company Number: US-PFIZER INC-2020355564

PATIENT
  Age: 57 Year
  Sex: Female

DRUGS (7)
  1. EPINEPHRINE. [Suspect]
     Active Substance: EPINEPHRINE
     Indication: LOCAL ANAESTHESIA
     Dosage: 100 ML, 1:400000
  2. KETAMINE HCL [Interacting]
     Active Substance: KETAMINE HYDROCHLORIDE
     Dosage: 20 MG
     Route: 042
  3. SECONAL [SECOBARBITAL] [Concomitant]
     Dosage: 200 MG
     Route: 048
  4. DEMEROL [Concomitant]
     Active Substance: MEPERIDINE HYDROCHLORIDE
     Dosage: 75 MG
  5. LIDOCAINE. [Concomitant]
     Active Substance: LIDOCAINE
     Indication: LOCAL ANAESTHESIA
     Dosage: 100 ML
  6. VISTARIL [Concomitant]
     Active Substance: HYDROXYZINE PAMOATE
     Dosage: 50 MG
     Route: 030
  7. DIAZEPAM. [Concomitant]
     Active Substance: DIAZEPAM
     Dosage: 2.5 MG
     Route: 042

REACTIONS (2)
  - Arrhythmia [Recovered/Resolved]
  - Drug interaction [Recovered/Resolved]
